FAERS Safety Report 6985461-6 (Version None)
Quarter: 2010Q3

REPORT INFORMATION
  Report Type: 
  Country: None (occurrence: None)
  Receive Date: 20100915
  Receipt Date: 20100910
  Transmission Date: 20110219
  Serious: Yes (Other)
  Sender: FDA-Public Use
  Company Number: A0880674A

PATIENT
  Age: 54 Year
  Sex: Female

DRUGS (5)
  1. LAMICTAL [Suspect]
     Dosage: 300MG PER DAY
     Route: 048
     Dates: start: 20100701
  2. LAMOTRIGINE [Suspect]
     Dosage: 150MG TWICE PER DAY
     Route: 048
     Dates: start: 20100830, end: 20100901
  3. KEPPRA [Concomitant]
  4. DILANTIN [Concomitant]
  5. NEURONTIN [Concomitant]

REACTIONS (8)
  - APHAGIA [None]
  - ASTHENIA [None]
  - DEPRESSION [None]
  - DIPLOPIA [None]
  - DIZZINESS [None]
  - HOT FLUSH [None]
  - NAUSEA [None]
  - PAIN [None]
